FAERS Safety Report 7881904-4 (Version None)
Quarter: 2011Q4

REPORT INFORMATION
  Report Type: 
  Country: None (occurrence: None)
  Receive Date: 20111101
  Receipt Date: 20110601
  Transmission Date: 20120403
  Serious: No
  Sender: FDA-Public Use
  Company Number: US-AMGEN-USASP2011028422

PATIENT
  Age: 53 Year
  Sex: Female

DRUGS (7)
  1. FOLIC ACID [Concomitant]
  2. MULTIPLE VITAMINS [Concomitant]
  3. METHOTREXATE [Concomitant]
  4. LIOTHYRONINE SODIUM [Concomitant]
  5. ENBREL [Suspect]
     Indication: PRODUCT USED FOR UNKNOWN INDICATION
     Dosage: 50 MG, QWK
     Route: 058
  6. VIVELLE [Concomitant]
  7. LEVOXYL [Concomitant]

REACTIONS (2)
  - SWELLING [None]
  - INJECTION SITE PAIN [None]
